FAERS Safety Report 5565599-0 (Version None)
Quarter: 2007Q4

REPORT INFORMATION
  Report Type: 
  Country: None (occurrence: None)
  Receive Date: 20071218
  Receipt Date: 20071204
  Transmission Date: 20080405
  Serious: No
  Sender: FDA-Public Use
  Company Number: US-BOEHRINGER INGELHEIM PHARMACEUTICALS, INC.-2007-BP-25674BP

PATIENT
  Sex: Male

DRUGS (5)
  1. SPIRIVA [Suspect]
     Indication: CHRONIC OBSTRUCTIVE PULMONARY DISEASE
  2. SPIRIVA [Suspect]
     Indication: ASTHMA
  3. ATROVENT [Concomitant]
     Indication: DYSPNOEA
  4. FLOVENT [Concomitant]
     Indication: DYSPNOEA
  5. MAXAIR [Concomitant]
     Indication: DYSPNOEA

REACTIONS (1)
  - HYPERSENSITIVITY [None]
